FAERS Safety Report 11522597 (Version 1)
Quarter: 2015Q3

REPORT INFORMATION
  Report Type: Spontaneous
  Country: US (occurrence: US)
  Receive Date: 20150918
  Receipt Date: 20150918
  Transmission Date: 20151125
  Serious: Yes (Hospitalization, Other)
  Sender: FDA-Public Use
  Company Number: US-ROCHE-715681

PATIENT
  Age: 43 Year
  Sex: Female

DRUGS (3)
  1. PEGASYS [Suspect]
     Active Substance: PEGINTERFERON ALFA-2A
     Indication: PRODUCT USED FOR UNKNOWN INDICATION
     Route: 065
  2. RIBAVIRIN. [Suspect]
     Active Substance: RIBAVIRIN
     Route: 065
  3. RIBAVIRIN. [Suspect]
     Active Substance: RIBAVIRIN
     Indication: PRODUCT USED FOR UNKNOWN INDICATION
     Route: 065

REACTIONS (14)
  - Alcohol abuse [Unknown]
  - Contusion [Unknown]
  - Nausea [Unknown]
  - Stress [Unknown]
  - Fall [Unknown]
  - Intentional self-injury [Unknown]
  - Suicidal ideation [Unknown]
  - Abdominal pain [Unknown]
  - Memory impairment [Unknown]
  - Extra dose administered [Unknown]
  - Vomiting [Unknown]
  - Faeces discoloured [Unknown]
  - Psychiatric symptom [Unknown]
  - Insomnia [Unknown]

NARRATIVE: CASE EVENT DATE: 20100711
